FAERS Safety Report 9938266 (Version 2)
Quarter: 2014Q1

REPORT INFORMATION
  Report Type: Report from Study
  Country: US (occurrence: US)
  Receive Date: 20140303
  Receipt Date: 20140303
  Transmission Date: 20141002
  Serious: Yes (Hospitalization, Other)
  Sender: FDA-Public Use
  Company Number: US-ABBVIE-12P-163-0969139-00

PATIENT
  Age: 75 Year
  Sex: Female

DRUGS (15)
  1. HUMIRA 40 MG/0.8 ML PEN [Suspect]
     Indication: RHEUMATOID ARTHRITIS
     Dates: start: 20060304, end: 20100710
  2. HUMIRA 40 MG/0.8 ML PEN [Suspect]
     Dates: start: 20120729
  3. METHOTREXATE [Suspect]
     Indication: PRODUCT USED FOR UNKNOWN INDICATION
  4. PLAQUENIL [Suspect]
     Indication: PRODUCT USED FOR UNKNOWN INDICATION
  5. SULFA MEDICATION [Suspect]
     Indication: BURNING SENSATION
  6. SIMVASTATIN [Concomitant]
     Indication: BLOOD CHOLESTEROL
  7. FUROSEMIDE [Concomitant]
     Indication: DIURETIC THERAPY
     Dosage: 20 MG DAILY
  8. POTASSIUM CHLORIDE [Concomitant]
     Indication: HYPERTENSION
     Dosage: 10 MEQ, 1 CAP DAILY
  9. DILTIAZEM [Concomitant]
     Indication: HYPERTENSION
     Dosage: DAILY
  10. ONGLYZA [Concomitant]
     Indication: DIABETES MELLITUS
  11. PROTONIX [Concomitant]
     Indication: GASTRIC DISORDER
     Dosage: 40 MG DAILY
  12. BABY ASPIRIN [Concomitant]
     Indication: PRODUCT USED FOR UNKNOWN INDICATION
     Dosage: 81 MG DAILY
  13. MULTIVITAMIN [Concomitant]
     Indication: PROPHYLAXIS
     Dosage: DAILY
  14. VITAMIN D [Concomitant]
     Indication: PRODUCT USED FOR UNKNOWN INDICATION
     Dosage: 2000 UNITS DAILY
  15. PRO-AIR [Concomitant]
     Indication: PRODUCT USED FOR UNKNOWN INDICATION

REACTIONS (19)
  - Pericardial effusion [Unknown]
  - Urosepsis [Recovering/Resolving]
  - Chest pain [Unknown]
  - Clostridium difficile colitis [Unknown]
  - Painful respiration [Unknown]
  - Mental impairment [Unknown]
  - Disinhibition [Unknown]
  - Rheumatoid arthritis [Unknown]
  - Rheumatoid arthritis [Unknown]
  - Rheumatoid arthritis [Unknown]
  - Device malfunction [Unknown]
  - Incorrect dose administered [Unknown]
  - Asthenia [Unknown]
  - Pruritus [Recovered/Resolved]
  - Type 2 diabetes mellitus [Unknown]
  - Pruritus [Not Recovered/Not Resolved]
  - Burning sensation [Unknown]
  - Drug hypersensitivity [Unknown]
  - Dermatitis allergic [Unknown]
